FAERS Safety Report 5390001-1 (Version None)
Quarter: 2007Q3

REPORT INFORMATION
  Report Type: 
  Country: None (occurrence: None)
  Receive Date: 20070718
  Receipt Date: 20070713
  Transmission Date: 20080115
  Serious: Yes (Hospitalization)
  Sender: FDA-Public Use
  Company Number: FR-BAYER-200610648BFR

PATIENT
  Age: 86 Year
  Sex: Female
  Weight: 40 kg

DRUGS (6)
  1. IZILOX [Suspect]
     Indication: PULMONARY TUBERCULOSIS
     Dosage: TOTAL DAILY DOSE: 400 MG  UNIT DOSE: 400 MG
     Route: 048
     Dates: start: 20050712, end: 20060221
  2. MYAMBUTOL [Suspect]
     Indication: PULMONARY TUBERCULOSIS
     Route: 048
     Dates: start: 20050712, end: 20060112
  3. NOVONORM [Concomitant]
     Indication: DIABETES MELLITUS
  4. SEROPRAM [Concomitant]
     Indication: DEPRESSION
  5. KARDEGIC [Concomitant]
     Indication: TRANSIENT ISCHAEMIC ATTACK
  6. PIRILENE [Concomitant]
     Indication: PULMONARY TUBERCULOSIS
     Dates: start: 20050712

REACTIONS (1)
  - OPTIC NEURITIS RETROBULBAR [None]
